FAERS Safety Report 4706952-4 (Version None)
Quarter: 2005Q3

REPORT INFORMATION
  Report Type: 
  Country: None (occurrence: None)
  Receive Date: 20050701
  Receipt Date: 20050620
  Transmission Date: 20060218
  Serious: Yes (Other)
  Sender: FDA-Public Use
  Company Number: 2005090778

PATIENT
  Age: 54 Year
  Sex: Female
  Weight: 194 kg

DRUGS (5)
  1. NEURONTIN [Suspect]
     Indication: RICKETS
     Dosage: 600 MG (200 MG, 3 IN 1 D), ORAL
     Route: 048
     Dates: start: 20020101
  2. GABAPENTIN [Suspect]
     Indication: ILL-DEFINED DISORDER
     Dosage: 800 MG (200 MG, 3 IN 1 D), ORAL
     Route: 048
     Dates: start: 20050101, end: 20050101
  3. OXYCONTIN [Concomitant]
  4. CLINORIL [Concomitant]
  5. LORTAB [Concomitant]

REACTIONS (8)
  - ABDOMINAL PAIN UPPER [None]
  - APHASIA [None]
  - CEREBROVASCULAR ACCIDENT [None]
  - FOAMING AT MOUTH [None]
  - HEPATIC PAIN [None]
  - PHARMACEUTICAL PRODUCT COMPLAINT [None]
  - PRURITUS [None]
  - TREMOR [None]
